FAERS Safety Report 8052539-8 (Version None)
Quarter: 2012Q1

REPORT INFORMATION
  Report Type: 
  Country: None (occurrence: None)
  Receive Date: 20120112
  Receipt Date: 20120109
  Transmission Date: 20120608
  Serious: Yes (Death)
  Sender: FDA-Public Use
  Company Number: 1000023021

PATIENT
  Age: 19 Year
  Sex: Male

DRUGS (1)
  1. CELEXA [Suspect]
     Indication: MAJOR DEPRESSION
     Dosage: 20 MG (20 MG, 1 IN 1 D), ORAL
     Route: 048
     Dates: start: 20081001, end: 20081009

REACTIONS (6)
  - THERAPY CESSATION [None]
  - IRRITABILITY [None]
  - TREATMENT NONCOMPLIANCE [None]
  - ASPHYXIA [None]
  - ANGER [None]
  - ACCIDENTAL DEATH [None]
